FAERS Safety Report 5454148-3 (Version None)
Quarter: 2007Q3

REPORT INFORMATION
  Report Type: 
  Country: None (occurrence: None)
  Receive Date: 20070917
  Receipt Date: 20070228
  Transmission Date: 20080115
  Serious: Yes (Hospitalization, Other)
  Sender: FDA-Public Use
  Company Number: US-ASTRAZENECA-2006UW11326

PATIENT
  Age: 61 Year
  Sex: Female
  Weight: 73.2 kg

DRUGS (11)
  1. SEROQUEL [Suspect]
     Indication: DEPRESSION
     Route: 048
     Dates: start: 19980101
  2. ABILIFY [Suspect]
     Dates: start: 19980101
  3. ABILIFY [Suspect]
     Dates: start: 20000101
  4. THORAZINE [Suspect]
     Dates: start: 19980101
  5. THORAZINE [Suspect]
     Dates: start: 20060101
  6. ZYPREXA [Suspect]
     Dates: start: 19980101
  7. ZYPREXA [Suspect]
     Dates: start: 20000101
  8. RISPERDAL [Suspect]
     Dates: start: 19980101
  9. RISPERDAL [Suspect]
     Dates: start: 20060101
  10. STELAZINE [Concomitant]
  11. NAVANE [Concomitant]

REACTIONS (4)
  - CHEST PAIN [None]
  - DEPRESSION [None]
  - DIABETES MELLITUS [None]
  - PANCREATITIS [None]
